FAERS Safety Report 10705325 (Version 7)
Quarter: 2015Q2

REPORT INFORMATION
  Report Type: Spontaneous
  Country: US (occurrence: US)
  Receive Date: 20150112
  Receipt Date: 20150421
  Transmission Date: 20150821
  Serious: Yes (Disabling)
  Sender: FDA-Public Use
  Company Number: US-009507513-1109USA00265

PATIENT
  Sex: Male

DRUGS (1)
  1. PROPECIA [Suspect]
     Active Substance: FINASTERIDE
     Indication: ALOPECIA
     Dosage: 1 MG, QD
     Route: 048
     Dates: start: 20071103, end: 20081212

REACTIONS (35)
  - Anxiety [Not Recovered/Not Resolved]
  - Hyperlipidaemia [Unknown]
  - Sexual dysfunction [Not Recovered/Not Resolved]
  - Back pain [Unknown]
  - Post-traumatic stress disorder [Unknown]
  - Tendonitis [Unknown]
  - Tinnitus [Unknown]
  - Dyshidrotic eczema [Unknown]
  - Diarrhoea [Unknown]
  - Infertility male [Recovered/Resolved]
  - Spinal osteoarthritis [Unknown]
  - Cardiovascular insufficiency [Unknown]
  - Dizziness [Unknown]
  - Keratosis pilaris [Unknown]
  - Dyshidrotic eczema [Unknown]
  - Depression [Not Recovered/Not Resolved]
  - Urticaria [Recovering/Resolving]
  - Hormone level abnormal [Unknown]
  - Varicocele [Unknown]
  - Erectile dysfunction [Not Recovered/Not Resolved]
  - Semen volume decreased [Not Recovered/Not Resolved]
  - Testicular pain [Not Recovered/Not Resolved]
  - Bunion operation [Unknown]
  - Face injury [Unknown]
  - Road traffic accident [Unknown]
  - Hydrocele [Unknown]
  - Amnesia [Unknown]
  - Obesity [Unknown]
  - Drug ineffective [Unknown]
  - Libido decreased [Not Recovered/Not Resolved]
  - Cognitive disorder [Not Recovered/Not Resolved]
  - Hypersensitivity [Unknown]
  - Dysaesthesia [Unknown]
  - Dandruff [Unknown]
  - Epididymitis [Unknown]

NARRATIVE: CASE EVENT DATE: 20080731
